FAERS Safety Report 13839436 (Version 1)
Quarter: 2017Q3

REPORT INFORMATION
  Report Type: Spontaneous
  Country: US (occurrence: US)
  Receive Date: 20170805
  Receipt Date: 20170805
  Transmission Date: 20171127
  Serious: Yes (Hospitalization)
  Sender: FDA-Public Use
  Company Number: None

PATIENT
  Age: 56 Year
  Sex: Female

DRUGS (7)
  1. FERROUS SULFATE. [Concomitant]
     Active Substance: FERROUS SULFATE
  2. CALCIUM ACETATE. [Concomitant]
     Active Substance: CALCIUM ACETATE
  3. GLIPIZIDE. [Suspect]
     Active Substance: GLIPIZIDE
     Indication: HYPERGLYCAEMIA
     Dosage: 10 MG DAILY PO\\CONTINUED - 03-MAY- 2017
     Route: 048
     Dates: start: 20170503
  4. CARVEDILOL. [Concomitant]
     Active Substance: CARVEDILOL
  5. FUROSEMIDE. [Concomitant]
     Active Substance: FUROSEMIDE
  6. AMLODIPINE [Concomitant]
     Active Substance: AMLODIPINE BESYLATE
  7. METHADONE [Concomitant]
     Active Substance: METHADONE HYDROCHLORIDE

REACTIONS (6)
  - Hypoglycaemia [None]
  - Vision blurred [None]
  - Dysgeusia [None]
  - Blood glucose decreased [None]
  - Renal impairment [None]
  - Asthenia [None]

NARRATIVE: CASE EVENT DATE: 20170502
